FAERS Safety Report 20424294 (Version 2)
Quarter: 2022Q1

REPORT INFORMATION
  Report Type: Report from Study
  Country: DE (occurrence: DE)
  Receive Date: 20220203
  Receipt Date: 20220316
  Transmission Date: 20220423
  Serious: Yes (Hospitalization)
  Sender: FDA-Public Use
  Company Number: DE-ABBVIE-22K-062-4261952-00

PATIENT
  Sex: Female

DRUGS (2)
  1. CARBIDOPA\LEVODOPA [Suspect]
     Active Substance: CARBIDOPA\LEVODOPA
     Indication: Parkinson^s disease
     Dosage: MD 7.0ML, CRD 3.6ML/H, CRN 0.0ML/H, ED 1.0ML
     Route: 050
     Dates: start: 20210511
  2. CARBIDOPA\LEVODOPA [Suspect]
     Active Substance: CARBIDOPA\LEVODOPA
     Dosage: MD 7.0ML, CRD 3.8ML/H, CRN 0.0ML/H, ED 1.0ML?DOSE INCREASED
     Route: 050

REACTIONS (2)
  - Infection [Unknown]
  - Fall [Unknown]
